FAERS Safety Report 7421530-4 (Version None)
Quarter: 2011Q2

REPORT INFORMATION
  Report Type: 
  Country: None (occurrence: None)
  Receive Date: 20110408
  Receipt Date: 20110324
  Transmission Date: 20111010
  Serious: Yes (Other)
  Sender: FDA-Public Use
  Company Number: IPC201103-000477

PATIENT

DRUGS (4)
  1. METOCLOPRAMIDE HCL [Suspect]
     Dosage: ORAL
     Route: 048
     Dates: start: 20010201, end: 20091201
  2. METOCLOPRAMIDE HCL [Suspect]
     Dosage: 5 MG, TABLETS, ORAL
     Route: 048
     Dates: start: 20010201, end: 20091201
  3. METOCLOPRAMIDE HCL [Suspect]
     Dosage: 10 MG TABLETS, ORAL
     Route: 048
     Dates: start: 20010201, end: 20091201
  4. REGLAN [Suspect]
     Dosage: ORAL
     Route: 048
     Dates: start: 20010201, end: 20091201

REACTIONS (1)
  - DYSKINESIA [None]
